FAERS Safety Report 14757622 (Version 2)
Quarter: 2018Q2

REPORT INFORMATION
  Report Type: Other
  Country: RU (occurrence: RU)
  Receive Date: 20180413
  Receipt Date: 20180422
  Transmission Date: 20180711
  Serious: Yes (Hospitalization)
  Sender: FDA-Public Use
  Company Number: RU-APOTEX-2018AP010007

PATIENT
  Age: 17 Year
  Sex: Male

DRUGS (3)
  1. ELCAR [Suspect]
     Active Substance: LEVOCARNITINE HYDROCHLORIDE
     Indication: MENTAL DISORDER
     Dosage: 5 G, BID
     Route: 048
     Dates: start: 20170914, end: 20170915
  2. PAXIL [Suspect]
     Active Substance: PAROXETINE HYDROCHLORIDE
     Indication: MENTAL DISORDER
     Dosage: 10 MG, 1D
     Route: 048
     Dates: start: 20170914, end: 20170915
  3. ATARAX [Suspect]
     Active Substance: HYDROXYZINE HYDROCHLORIDE
     Indication: MENTAL DISORDER
     Dosage: 12.5 MG, 1D
     Route: 048
     Dates: start: 20170914, end: 20170915

REACTIONS (2)
  - Lethargy [Recovering/Resolving]
  - Dysphagia [Recovering/Resolving]

NARRATIVE: CASE EVENT DATE: 20170915
